FAERS Safety Report 6569991-7 (Version None)
Quarter: 2010Q1

REPORT INFORMATION
  Report Type: 
  Country: None (occurrence: None)
  Receive Date: 20100204
  Receipt Date: 20100127
  Transmission Date: 20100710
  Serious: Yes (Hospitalization)
  Sender: FDA-Public Use
  Company Number: FR-BAXTER-2010BH002135

PATIENT
  Age: 28 Year
  Sex: Male

DRUGS (5)
  1. UROMITEXAN BAXTER [Suspect]
     Indication: DRUG USE FOR UNKNOWN INDICATION
     Route: 042
     Dates: end: 20091013
  2. HOLOXAN BAXTER [Suspect]
     Indication: OSTEOSARCOMA LOCALISED
     Route: 042
     Dates: start: 20090826, end: 20091013
  3. DOXORUBICIN HCL [Suspect]
     Indication: OSTEOSARCOMA LOCALISED
     Route: 042
     Dates: end: 20091013
  4. EMEND [Suspect]
     Indication: DRUG USE FOR UNKNOWN INDICATION
     Route: 048
     Dates: end: 20090927
  5. EMEND [Suspect]
     Route: 048
     Dates: end: 20091013

REACTIONS (1)
  - ENCEPHALOPATHY [None]
